FAERS Safety Report 7476845-0 (Version None)
Quarter: 2011Q2

REPORT INFORMATION
  Report Type: 
  Country: None (occurrence: None)
  Receive Date: 20110512
  Receipt Date: 20110502
  Transmission Date: 20111010
  Serious: Yes (Death, Other)
  Sender: FDA-Public Use
  Company Number: FR-ELI_LILLY_AND_COMPANY-FR201105000581

PATIENT

DRUGS (2)
  1. PEMETREXED [Suspect]
     Dosage: 500 MG/M2, 3/W
     Route: 065
  2. ZIBOTENTAN [Concomitant]
     Dosage: 10 MG, QD
     Route: 065

REACTIONS (1)
  - PANCYTOPENIA [None]
